FAERS Safety Report 7656813-6 (Version None)
Quarter: 2011Q3

REPORT INFORMATION
  Report Type: 
  Country: None (occurrence: None)
  Receive Date: 20110804
  Receipt Date: 20110727
  Transmission Date: 20111222
  Serious: Yes (Hospitalization)
  Sender: FDA-Public Use
  Company Number: DE-GENENTECH-317879

PATIENT
  Sex: Male

DRUGS (19)
  1. DOXORUBICIN HCL [Suspect]
     Dosage: 35 MG/M2, UNK
     Route: 042
     Dates: start: 20110316
  2. ETOPOSIDE [Suspect]
     Indication: HODGKIN'S DISEASE
     Dosage: 200 MG/M2, UNK
     Route: 065
     Dates: start: 20110224
  3. CIPROFLAXACIN [Concomitant]
     Indication: PRODUCT USED FOR UNKNOWN INDICATION
     Dosage: 1 DF, QAM
     Dates: start: 20110303, end: 20110309
  4. DOXORUBICIN HCL [Suspect]
     Indication: HODGKIN'S DISEASE
     Dosage: 35 MG/M2, UNK
     Route: 042
     Dates: start: 20110224
  5. PROCARBAZINE HYDROCHLORIDE [Suspect]
     Dosage: 100 MG/M2, UNK
     Route: 042
     Dates: start: 20110316
  6. PREDNISONE [Suspect]
     Dosage: 40 MG/M2, UNK
     Route: 065
     Dates: start: 20110316
  7. RITUXIMAB [Suspect]
     Indication: HODGKIN'S DISEASE
     Dosage: 375 MG/M2, UNK
     Route: 042
     Dates: start: 20110316
  8. ACYCLOVIR [Concomitant]
     Indication: PRODUCT USED FOR UNKNOWN INDICATION
     Dosage: 1 DF, QAM
  9. BLEOMYCIN [Suspect]
     Dosage: 10 MG/M2, UNK
     Route: 042
     Dates: start: 20110316
  10. PROCARBAZINE HYDROCHLORIDE [Suspect]
     Indication: HODGKIN'S DISEASE
     Dosage: 100 MG/M2, UNK
     Route: 042
     Dates: start: 20110224
  11. PANTOPRAZOLE [Concomitant]
     Indication: PRODUCT USED FOR UNKNOWN INDICATION
     Dosage: 1 DF, QAM
     Dates: start: 20110303, end: 20110309
  12. CYCLOPHOSPHAMIDE [Suspect]
     Indication: HODGKIN'S DISEASE
     Dosage: 1250 MG/M2, UNK
     Route: 065
     Dates: start: 20110224
  13. FILGRASTIM [Suspect]
     Indication: PRODUCT USED FOR UNKNOWN INDICATION
     Dosage: 1 DF, QAM
     Route: 065
     Dates: start: 20110303, end: 20110309
  14. BLEOMYCIN [Suspect]
     Indication: HODGKIN'S DISEASE
     Dosage: 10 MG/M2, UNK
     Route: 042
     Dates: start: 20110224
  15. PREDNISONE [Suspect]
     Indication: HODGKIN'S DISEASE
     Dosage: 40 MG/M2, UNK
     Route: 065
     Dates: start: 20110224
  16. VINCRISTINE [Suspect]
     Indication: HODGKIN'S DISEASE
     Dosage: 1.4 MG/M2, UNK
     Route: 065
     Dates: start: 20110224
  17. CYCLOPHOSPHAMIDE [Suspect]
     Dosage: 1250 MG/M2, UNK
     Route: 065
     Dates: start: 20110316
  18. VINCRISTINE [Suspect]
     Dosage: 1.4 MG, UNK
     Route: 065
     Dates: start: 20110316
  19. COTRIM DS [Concomitant]
     Indication: PRODUCT USED FOR UNKNOWN INDICATION
     Dosage: 1 DF, QOD

REACTIONS (7)
  - C-REACTIVE PROTEIN DECREASED [None]
  - ARTHRALGIA [None]
  - BONE PAIN [None]
  - SEPSIS [None]
  - DEVICE RELATED INFECTION [None]
  - C-REACTIVE PROTEIN INCREASED [None]
  - PYREXIA [None]
